FAERS Safety Report 5826287-6 (Version None)
Quarter: 2008Q3

REPORT INFORMATION
  Report Type: 
  Country: None (occurrence: None)
  Receive Date: 20080729
  Receipt Date: 20080710
  Transmission Date: 20090109
  Serious: No
  Sender: FDA-Public Use
  Company Number: ES-PFIZER INC-2008042361

PATIENT
  Age: 61 Year
  Sex: Male

DRUGS (2)
  1. PREGABALIN [Suspect]
     Indication: NEURALGIA
     Dates: start: 20060317, end: 20060331
  2. ALL OTHER THERAPEUTIC PRODUCTS [Concomitant]

REACTIONS (1)
  - NO ADVERSE EVENT [None]
